FAERS Safety Report 7045744-0 (Version None)
Quarter: 2010Q4

REPORT INFORMATION
  Report Type: 
  Country: None (occurrence: None)
  Receive Date: 20101014
  Receipt Date: 20101006
  Transmission Date: 20110411
  Serious: Yes (Hospitalization)
  Sender: FDA-Public Use
  Company Number: US-BAXTER-2010BH016422

PATIENT
  Sex: Female

DRUGS (1)
  1. DIANEAL [Suspect]
     Route: 033

REACTIONS (1)
  - CEREBROVASCULAR ACCIDENT [None]
